FAERS Safety Report 10755383 (Version 1)
Quarter: 2015Q1

REPORT INFORMATION
  Report Type: Report from Study
  Country: BE (occurrence: BE)
  Receive Date: 20150202
  Receipt Date: 20150202
  Transmission Date: 20150721
  Serious: Yes (Hospitalization)
  Sender: FDA-Public Use
  Company Number: BE-ABBVIE-15P-013-1338772-00

PATIENT
  Sex: Female

DRUGS (5)
  1. DUODOPA [Suspect]
     Active Substance: CARBIDOPA\LEVODOPA
     Dosage: DOSAGE CONTINUOUSLY MONITORED AND ADJUSTED
     Route: 050
     Dates: end: 20130709
  2. DUODOPA [Suspect]
     Active Substance: CARBIDOPA\LEVODOPA
     Dosage: AM DOSE=3ML, CD=3.8ML/H FOR 16HRS, ND=3.5ML/H FOR 8HRS AND ED=1.5ML
     Route: 050
     Dates: start: 20130709, end: 20150126
  3. PROLOPA [Concomitant]
     Active Substance: BENSERAZIDE\LEVODOPA
     Indication: PRODUCT USED FOR UNKNOWN INDICATION
     Dosage: FORM STRENGTH:200MG/50MG
  4. DUODOPA [Suspect]
     Active Substance: CARBIDOPA\LEVODOPA
     Indication: PARKINSON^S DISEASE
     Dosage: THE REPORTER NURSE HAD CALLED THE PATIENT ON 29 JAN 2015 IN ORDER
     Route: 050
     Dates: start: 20071030
  5. DUODOPA [Suspect]
     Active Substance: CARBIDOPA\LEVODOPA
     Dosage: AM DOSE=3ML, CD=3.7ML/H FOR 16HRS AND ED:1.5ML
     Route: 050
     Dates: start: 20150126

REACTIONS (2)
  - Back pain [Unknown]
  - Hernia [Unknown]
